FAERS Safety Report 17611664 (Version 1)
Quarter: 2020Q2

REPORT INFORMATION
  Report Type: Spontaneous
  Country: GR (occurrence: GR)
  Receive Date: 20200401
  Receipt Date: 20200401
  Transmission Date: 20200713
  Serious: Yes (Other)
  Sender: FDA-Public Use
  Company Number: PHHY2019GR104037

PATIENT
  Age: 72 Year
  Sex: Female

DRUGS (6)
  1. PACLITAXEL. [Concomitant]
     Active Substance: PACLITAXEL
     Indication: ENDOMETRIAL ADENOCARCINOMA
     Dosage: UNK, WEEKLY (SECOND LINE TREATMENT)
     Route: 065
  2. HYCAMTIN [Suspect]
     Active Substance: TOPOTECAN HYDROCHLORIDE
     Indication: ENDOMETRIAL ADENOCARCINOMA
     Dosage: 1 UNK, CYCLIC (THIRD-LINE CHEMOTHERAPY)
     Route: 065
     Dates: start: 2018
  3. ADRIAMYCIN [Concomitant]
     Active Substance: DOXORUBICIN HYDROCHLORIDE
     Indication: METASTASES TO LUNG
     Dosage: 1 UNK, CYCLIC (6 CYCLES)
     Route: 005
  4. PACLITAXEL. [Concomitant]
     Active Substance: PACLITAXEL
     Indication: METASTASES TO LUNG
  5. CISPLATIN. [Concomitant]
     Active Substance: CISPLATIN
     Indication: METASTASES TO LUNG
     Dosage: 1 UNK, CYCLIC (6 CYCLES)
     Route: 037
  6. HYCAMTIN [Suspect]
     Active Substance: TOPOTECAN HYDROCHLORIDE
     Indication: NEOPLASM PROGRESSION

REACTIONS (6)
  - Product use in unapproved indication [Unknown]
  - Condition aggravated [Unknown]
  - Endometrial adenocarcinoma [Unknown]
  - Fatigue [Unknown]
  - Abdominal pain [Unknown]
  - Neoplasm progression [Unknown]
